FAERS Safety Report 10507236 (Version 1)
Quarter: 2014Q4

REPORT INFORMATION
  Report Type: Spontaneous
  Country: US (occurrence: US)
  Receive Date: 20141009
  Receipt Date: 20141009
  Transmission Date: 20150528
  Serious: No
  Sender: FDA-Public Use
  Company Number: US-DRREDDYS-USA/USA/14/0037182

PATIENT
  Sex: Female

DRUGS (1)
  1. CLODERM [Suspect]
     Active Substance: CLOCORTOLONE PIVALATE
     Indication: HERPES VIRUS INFECTION
     Route: 065

REACTIONS (2)
  - Paraesthesia [Unknown]
  - Erythema [Unknown]
